FAERS Safety Report 8780739 (Version 1)
Quarter: 2012Q4

REPORT INFORMATION
  Report Type: 
  Country: US (occurrence: US)
  Receive Date: 20120913
  Receipt Date: 20120913
  Transmission Date: 20130627
  Serious: No
  Sender: FDA-Public Use
  Company Number: US-VERTEX PHARMACEUTICAL INC.-AE-2012-008283

PATIENT

DRUGS (10)
  1. INCIVEK [Suspect]
     Indication: HEPATITIS C
     Route: 048
     Dates: start: 2012
  2. PEGASYS [Concomitant]
     Indication: HEPATITIS C
     Route: 058
     Dates: start: 2012
  3. RIBASPHERE [Concomitant]
     Indication: HEPATITIS C
     Route: 048
  4. ZOLPIDEM ER [Concomitant]
     Route: 048
  5. PRILOSEC [Concomitant]
     Route: 048
  6. FLECAINIDE [Concomitant]
     Route: 048
  7. LORAZEPAM [Concomitant]
     Route: 048
  8. PAROXETINE [Concomitant]
     Route: 048
  9. DIGOXIN [Concomitant]
     Route: 048
  10. ASPIRIN [Concomitant]
     Route: 048

REACTIONS (3)
  - Abdominal pain [Unknown]
  - Pain [Unknown]
  - Nausea [Unknown]
